FAERS Safety Report 6582114-3 (Version None)
Quarter: 2010Q1

REPORT INFORMATION
  Report Type: 
  Country: None (occurrence: None)
  Receive Date: 20100212
  Receipt Date: 20100212
  Transmission Date: 20100710
  Serious: Yes (Hospitalization)
  Sender: FDA-Public Use
  Company Number: None

PATIENT
  Sex: Female
  Weight: 65 kg

DRUGS (6)
  1. CYTARABINE [Suspect]
     Dosage: 70 MG
     Dates: end: 20100123
  2. DAUNORUBICIN HCL [Suspect]
     Dosage: 86 MG
     Dates: end: 20100131
  3. METHOTREXATE [Suspect]
     Dosage: 15 MG
     Dates: end: 20100131
  4. PEG-L ASPARAGINASE (K-H) [Suspect]
     Dosage: 4250 IU
     Dates: end: 20100127
  5. PREDNISONE [Suspect]
     Dosage: 1350 MG
     Dates: end: 20100205
  6. VINCRISTINE SULFATE [Suspect]
     Dosage: 4 MG
     Dates: end: 20100131

REACTIONS (4)
  - DIALYSIS [None]
  - HYPERTENSION [None]
  - REVERSIBLE POSTERIOR LEUKOENCEPHALOPATHY SYNDROME [None]
  - TUMOUR LYSIS SYNDROME [None]
